FAERS Safety Report 6721468-1 (Version None)
Quarter: 2010Q2

REPORT INFORMATION
  Report Type: 
  Country: None (occurrence: None)
  Receive Date: 20100512
  Receipt Date: 20100503
  Transmission Date: 20101027
  Serious: Yes (Hospitalization)
  Sender: FDA-Public Use
  Company Number: US-JNJFOC-20100306597

PATIENT
  Sex: Male
  Weight: 87.54 kg

DRUGS (3)
  1. SIMPONI [Suspect]
     Indication: RHEUMATOID ARTHRITIS
     Route: 058
  2. PREDNISONE [Concomitant]
     Indication: RHEUMATOID ARTHRITIS
  3. OXYCODONE [Concomitant]
     Indication: PAIN

REACTIONS (2)
  - RHEUMATOID ARTHRITIS [None]
  - SPINAL FUSION SURGERY [None]
